FAERS Safety Report 5801922-7 (Version None)
Quarter: 2008Q3

REPORT INFORMATION
  Report Type: 
  Country: None (occurrence: None)
  Receive Date: 20080702
  Receipt Date: 20080617
  Transmission Date: 20090109
  Serious: Yes (Other)
  Sender: FDA-Public Use
  Company Number: 107557

PATIENT
  Age: 75 Year
  Sex: Male

DRUGS (4)
  1. DAIVOBET (DAIVOBET /01643401/) [Suspect]
     Indication: PSORIASIS
     Dosage: TOPICAL
     Route: 061
     Dates: start: 20070830
  2. PAROXETINE HCL [Concomitant]
  3. SERC (THIORIDAZINE) [Concomitant]
  4. TANAKAN (GINKGO BILOBA EXTRACT) [Concomitant]

REACTIONS (2)
  - DRUG INEFFECTIVE [None]
  - ERYTHRODERMIC PSORIASIS [None]
